FAERS Safety Report 7378531-4 (Version None)
Quarter: 2011Q1

REPORT INFORMATION
  Report Type: 
  Country: None (occurrence: None)
  Receive Date: 20110323
  Receipt Date: 20110323
  Transmission Date: 20110831
  Serious: Yes (Hospitalization)
  Sender: FDA-Public Use
  Company Number: None

PATIENT
  Age: 68 Year
  Sex: Female
  Weight: 66.2252 kg

DRUGS (1)
  1. LOSARTAN POTASSIUM [Suspect]
     Indication: HYPERTENSION
     Dosage: .25 2X
     Dates: start: 20110222, end: 20110319

REACTIONS (2)
  - HYPERTENSION [None]
  - HEADACHE [None]
